FAERS Safety Report 9690209 (Version 2)
Quarter: 2013Q4

REPORT INFORMATION
  Report Type: Report from Study
  Country: AU (occurrence: AU)
  Receive Date: 20131115
  Receipt Date: 20131230
  Transmission Date: 20140711
  Serious: Yes (Hospitalization)
  Sender: FDA-Public Use
  Company Number: AU-ROCHE-1302228

PATIENT
  Age: 7 Year
  Sex: Female

DRUGS (3)
  1. BEVACIZUMAB [Suspect]
     Indication: GLIOMA
     Route: 065
     Dates: start: 20131008
  2. BEVACIZUMAB [Suspect]
     Route: 065
     Dates: start: 20131022
  3. TEMOZOLOMIDE [Suspect]
     Indication: GLIOMA
     Route: 065

REACTIONS (2)
  - Pyrexia [Recovered/Resolved]
  - Device related infection [Recovered/Resolved]
